FAERS Safety Report 4798300-9 (Version None)
Quarter: 2005Q4

REPORT INFORMATION
  Report Type: 
  Country: None (occurrence: None)
  Receive Date: 20051014
  Receipt Date: 20050923
  Transmission Date: 20060501
  Serious: Yes (Hospitalization)
  Sender: FDA-Public Use
  Company Number: 2005CG01577

PATIENT
  Age: 75 Year
  Sex: Female
  Weight: 52 kg

DRUGS (7)
  1. MOPRAL [Suspect]
     Route: 048
     Dates: end: 20050816
  2. PLAQUENIL [Suspect]
     Route: 048
     Dates: end: 20050816
  3. SOLIAN [Suspect]
     Route: 048
     Dates: end: 20050816
  4. ZOLOFT [Suspect]
     Route: 048
     Dates: end: 20050816
  5. ARAVA [Suspect]
     Route: 048
     Dates: end: 20050816
  6. ZOPICLONE [Suspect]
     Route: 048
     Dates: end: 20050816
  7. MELOXICAM [Concomitant]
     Dates: end: 20050816

REACTIONS (2)
  - RHEUMATOID ARTHRITIS [None]
  - THROMBOTIC MICROANGIOPATHY [None]
